FAERS Safety Report 5447177-7 (Version None)
Quarter: 2007Q3

REPORT INFORMATION
  Report Type: 
  Country: None (occurrence: None)
  Receive Date: 20070910
  Receipt Date: 20070831
  Transmission Date: 20080115
  Serious: Yes (Other)
  Sender: FDA-Public Use
  Company Number: PHRM2007FR02124

PATIENT
  Age: 6 Year
  Sex: Female

DRUGS (1)
  1. EXJADE [Suspect]
     Indication: THALASSAEMIA BETA
     Dosage: 20 MG/KG, QD
     Route: 048
     Dates: start: 20070301

REACTIONS (5)
  - BLOOD POTASSIUM DECREASED [None]
  - GLYCOSURIA [None]
  - RENAL TUBULAR DISORDER [None]
  - URINE POTASSIUM INCREASED [None]
  - URINE SODIUM INCREASED [None]
